FAERS Safety Report 8420501-9 (Version None)
Quarter: 2012Q2

REPORT INFORMATION
  Report Type: 
  Country: None (occurrence: None)
  Receive Date: 20120608
  Receipt Date: 20120522
  Transmission Date: 20120825
  Serious: Yes (Other)
  Sender: FDA-Public Use
  Company Number: US-ASTRAZENECA-2011SE41564

PATIENT
  Age: 65 Year
  Sex: Male
  Weight: 99.8 kg

DRUGS (9)
  1. PRILOSEC OTC [Concomitant]
  2. CALCIUM [Concomitant]
  3. PRILOSEC [Concomitant]
  4. BISMUTH SUBSALICYLATE [Concomitant]
  5. NEXIUM [Suspect]
     Indication: GASTROOESOPHAGEAL REFLUX DISEASE
     Route: 048
     Dates: start: 20010101, end: 20101001
  6. NEXIUM [Suspect]
     Route: 048
  7. CALCIUM CARBONATE [Concomitant]
  8. ZANTAC [Concomitant]
  9. CLONAZEPAM [Concomitant]

REACTIONS (4)
  - EMOTIONAL DISTRESS [None]
  - OSTEOPOROSIS [None]
  - MULTIPLE FRACTURES [None]
  - SPINAL FRACTURE [None]
